FAERS Safety Report 6845351-6 (Version None)
Quarter: 2010Q3

REPORT INFORMATION
  Report Type: 
  Country: None (occurrence: None)
  Receive Date: 20100715
  Receipt Date: 20070821
  Transmission Date: 20110219
  Serious: No
  Sender: FDA-Public Use
  Company Number: US-PFIZER INC-2007069258

PATIENT
  Sex: Female
  Weight: 59.1 kg

DRUGS (9)
  1. CHANTIX [Suspect]
     Indication: SMOKING CESSATION THERAPY
     Dates: start: 20070801
  2. VITAMIN C [Concomitant]
  3. VITAMIN D [Concomitant]
  4. PAXIL [Concomitant]
  5. ALL OTHER THERAPEUTIC PRODUCTS [Concomitant]
  6. CALCIUM [Concomitant]
  7. FOSAMAX [Concomitant]
  8. BECLOMETASONE DIPROPIONATE [Concomitant]
  9. OTHER RESPIRATORY SYSTEM PRODUCTS [Concomitant]

REACTIONS (1)
  - ABDOMINAL DISCOMFORT [None]
